FAERS Safety Report 7564544-6 (Version None)
Quarter: 2011Q2

REPORT INFORMATION
  Report Type: 
  Country: None (occurrence: None)
  Receive Date: 20110622
  Receipt Date: 20100602
  Transmission Date: 20111010
  Serious: Yes (Other)
  Sender: FDA-Public Use
  Company Number: US-MYLANLABS-2010S1008972

PATIENT
  Age: 31 Year
  Sex: Male

DRUGS (10)
  1. CLONAZEPAM [Concomitant]
     Route: 048
  2. CLOZAPINE [Suspect]
     Route: 048
     Dates: end: 20100501
  3. LUNESTA [Concomitant]
     Route: 048
  4. SIMVASTATIN [Concomitant]
     Route: 048
  5. RANITIDINE [Concomitant]
     Route: 048
  6. PAROXETINE HCL [Concomitant]
     Route: 048
  7. RISPERIDONE [Concomitant]
     Route: 048
  8. BENZTROPINE MESYLATE [Concomitant]
     Route: 048
  9. TEMAZEPAM [Concomitant]
     Route: 048
  10. LEVOTHYROXINE SODIUM [Concomitant]
     Route: 048

REACTIONS (2)
  - LEUKOPENIA [None]
  - GRANULOCYTOPENIA [None]
